APPROVED DRUG PRODUCT: DISULFIRAM
Active Ingredient: DISULFIRAM
Strength: 500MG
Dosage Form/Route: TABLET;ORAL
Application: A087974 | Product #001
Applicant: WATSON LABORATORIES INC
Approved: Aug 5, 1983 | RLD: No | RS: No | Type: DISCN